FAERS Safety Report 7308512-8 (Version None)
Quarter: 2011Q1

REPORT INFORMATION
  Report Type: 
  Country: None (occurrence: None)
  Receive Date: 20110211
  Receipt Date: 20110202
  Transmission Date: 20110831
  Serious: Yes (Life-Threatening, Hospitalization)
  Sender: FDA-Public Use
  Company Number: DSM-2011-00084

PATIENT
  Age: 87 Year
  Sex: Female

DRUGS (7)
  1. GLUCOPHAGE [Suspect]
     Indication: TYPE 2 DIABETES MELLITUS
     Dosage: 2000 MG (1000 MG,2 IN 1 D),ORAL
     Route: 048
     Dates: end: 20101115
  2. OLMETEC (OLMESARTAN MEDOXOMIL) (TABLET) (OLMESARTAN MEDOXOMIL) [Suspect]
     Indication: HYPERTENSION
     Dosage: 40 MG (40 MG,1 IN 1 D),ORAL
     Route: 048
     Dates: end: 20101115
  3. TANAKAN (GINKGO BILOBA) (GINKGO BILOBA) [Suspect]
     Indication: PRODUCT USED FOR UNKNOWN INDICATION
     Dosage: 2 DOSAGE FORMS,ORAL
     Route: 048
     Dates: end: 20101115
  4. SMECTA (ALUMINIUM MAGNESIUM SILICATE) (ALUMINIUM MAGNESIUM SILICATE) [Concomitant]
  5. AMLOR (AMLODIPINE BESILATE) (CAPSULE) (AMLODIPINE BESILATE) [Suspect]
     Indication: HYPERTENSION
     Dosage: 5 MG (5 MG,1 IN 1 D),ORAL
     Route: 048
     Dates: end: 20101115
  6. LASILIX FAIBLE (FUROSEMIDE) (TABLET) (FUROSEMIDE) [Suspect]
     Indication: HYPERTENSION
     Dosage: 20 MG (20 MG,1 IN 1 D),ORAL
     Route: 048
     Dates: end: 20101115
  7. SPASFON (PHLOROGLUCINOL TRIMETHYLPHLOROGLUCINOL) (PHLOROGLUCINOL, TRIM [Concomitant]

REACTIONS (15)
  - PULMONARY EMBOLISM [None]
  - RENAL FAILURE ACUTE [None]
  - CARDIO-RESPIRATORY ARREST [None]
  - HAEMORRHAGIC STROKE [None]
  - CARDIOMEGALY [None]
  - KUSSMAUL RESPIRATION [None]
  - VOMITING [None]
  - COMA [None]
  - DIARRHOEA [None]
  - ATRIOVENTRICULAR BLOCK COMPLETE [None]
  - DIALYSIS [None]
  - HYPERKALAEMIA [None]
  - ISCHAEMIC STROKE [None]
  - LACTIC ACIDOSIS [None]
  - ACCIDENTAL OVERDOSE [None]
